FAERS Safety Report 8351768 (Version 3)
Quarter: 2012Q4

REPORT INFORMATION
  Report Type: 
  Country: JP (occurrence: JP)
  Receive Date: 20120124
  Receipt Date: 20121220
  Transmission Date: 20130627
  Serious: Yes (Hospitalization)
  Sender: FDA-Public Use
  Company Number: JP-GLAXOSMITHKLINE-B0739166A

PATIENT
  Age: 53 Year
  Sex: Female
  Weight: 70 kg

DRUGS (13)
  1. LAMICTAL [Suspect]
     Indication: SCHIZOAFFECTIVE DISORDER
     Dosage: 25MG Per day
     Route: 048
     Dates: start: 20110704
  2. LAMICTAL [Suspect]
     Indication: SCHIZOAFFECTIVE DISORDER
     Dosage: 50MG Per day
     Route: 048
     Dates: start: 20110720, end: 20110802
  3. LITIOMAL [Suspect]
     Indication: MANIA
     Dosage: 1000MG Per day
     Route: 048
     Dates: start: 20110601, end: 20110807
  4. BENZALIN [Concomitant]
     Dosage: 15MG Per day
     Route: 048
     Dates: end: 20110807
  5. GOODMIN [Concomitant]
     Dosage: .25MG Per day
     Route: 048
     Dates: end: 20110807
  6. SENNOSIDE [Concomitant]
     Dosage: 24MG Per day
     Route: 048
     Dates: end: 20110807
  7. MAGNESIUM OXIDE [Concomitant]
     Dosage: 2MG Twice per day
     Route: 048
     Dates: end: 20110807
  8. BEZAFIBRATE [Concomitant]
     Dosage: 200MG Twice per day
     Route: 048
     Dates: end: 20110807
  9. VALERIN [Concomitant]
     Indication: MANIA
     Dosage: 200MG Twice per day
     Route: 048
     Dates: start: 20110601, end: 20110701
  10. LOSIZOPILON [Concomitant]
     Indication: MANIA
     Dosage: 50MG Per day
     Route: 048
     Dates: start: 20110601, end: 20110701
  11. LOSIZOPILON [Concomitant]
     Indication: MANIA
     Dosage: 50MG Per day
     Route: 048
     Dates: start: 20110720, end: 20110807
  12. LULLAN [Concomitant]
     Indication: DEPRESSION
     Dosage: 8MG Four times per day
     Route: 048
     Dates: start: 20110701, end: 20110720
  13. TASMOLIN [Concomitant]
     Indication: EXTRAPYRAMIDAL DISORDER
     Dosage: 1MG Three times per day
     Route: 048
     Dates: start: 20110701, end: 20110807

REACTIONS (10)
  - Erythema multiforme [Unknown]
  - Urticaria [Unknown]
  - Depressive symptom [Unknown]
  - Pigmentation disorder [Unknown]
  - Neutrophil percentage increased [Unknown]
  - Alanine aminotransferase increased [Unknown]
  - Aspartate aminotransferase increased [Unknown]
  - Hypomania [Not Recovered/Not Resolved]
  - Generalised oedema [Unknown]
  - Generalised erythema [Not Recovered/Not Resolved]
